FAERS Safety Report 24283194 (Version 1)
Quarter: 2024Q3

REPORT INFORMATION
  Report Type: Spontaneous
  Country: RO (occurrence: RO)
  Receive Date: 20240904
  Receipt Date: 20240904
  Transmission Date: 20241016
  Serious: Yes (Other)
  Sender: MERCK
  Company Number: RO-009507513-2408ROU010224

PATIENT
  Age: 49 Year
  Sex: Male

DRUGS (3)
  1. PEMBROLIZUMAB [Suspect]
     Active Substance: PEMBROLIZUMAB
     Indication: Malignant melanoma stage II
     Dosage: 200 MILLIGRAM, Q3W
     Route: 042
     Dates: start: 20220630, end: 20220811
  2. PEMBROLIZUMAB [Suspect]
     Active Substance: PEMBROLIZUMAB
     Dosage: 200 MILLIGRAM, Q3W
     Route: 042
     Dates: start: 2022, end: 20230621
  3. PEMBROLIZUMAB [Suspect]
     Active Substance: PEMBROLIZUMAB
     Dosage: RESUMPTION OF PEMBROLIZUMAB, MORA THAN 6 MONTHS AFTER DISCONTINUATION

REACTIONS (4)
  - Hepatic cytolysis [Unknown]
  - Hypothyroidism [Recovering/Resolving]
  - Pruritus [Unknown]
  - Asthenia [Unknown]
